FAERS Safety Report 16805313 (Version 1)
Quarter: 2019Q4

REPORT INFORMATION
  Report Type: Spontaneous
  Country: US (occurrence: US)
  Receive Date: 20190913
  Receipt Date: 20190913
  Transmission Date: 20200122
  Serious: Yes (Hospitalization)
  Sender: FDA-Public Use
  Company Number: None

PATIENT
  Age: 79 Year
  Sex: Female
  Weight: 85.95 kg

DRUGS (1)
  1. SAVELLA [Suspect]
     Active Substance: MILNACIPRAN HYDROCHLORIDE
     Route: 048
     Dates: start: 20190628, end: 20190709

REACTIONS (5)
  - Flushing [None]
  - Chills [None]
  - Asthenia [None]
  - Tachycardia [None]
  - Hyperhidrosis [None]

NARRATIVE: CASE EVENT DATE: 20190709
